FAERS Safety Report 6491852-2 (Version None)
Quarter: 2009Q4

REPORT INFORMATION
  Report Type: 
  Country: None (occurrence: None)
  Receive Date: 20091125
  Receipt Date: 20090729
  Transmission Date: 20100525
  Serious: Yes (Other)
  Sender: FDA-Public Use
  Company Number: 2009BH012127

PATIENT
  Age: 29 Year
  Sex: Female

DRUGS (11)
  1. DIANEAL [Suspect]
     Indication: PERITONEAL DIALYSIS
     Dosage: 11 L; EVERY DAY; IP
     Route: 033
     Dates: start: 20070727, end: 20090720
  2. EXTRANEAL [Suspect]
     Indication: PERITONEAL DIALYSIS
     Dosage: 2 L; EVERY DAY; IP
     Route: 033
     Dates: start: 20090727, end: 20090727
  3. DEPO-PROVERA [Concomitant]
  4. METOPROLOL SUCCINATE [Concomitant]
  5. PROCRIT [Concomitant]
  6. COLACE [Concomitant]
  7. FIBERCON [Concomitant]
  8. ZEMPLAR [Concomitant]
  9. SENSIPAR [Concomitant]
  10. NEPHOCAPS [Concomitant]
  11. POTASSIUM CHLORIDE [Concomitant]

REACTIONS (3)
  - FALSE POSITIVE LABORATORY RESULT [None]
  - PERITONEAL DIALYSIS COMPLICATION [None]
  - PERITONITIS BACTERIAL [None]
